FAERS Safety Report 4627169-8 (Version None)
Quarter: 2005Q2

REPORT INFORMATION
  Report Type: 
  Country: None (occurrence: None)
  Receive Date: 20050405
  Receipt Date: 20050328
  Transmission Date: 20051028
  Serious: Yes (Other)
  Sender: FDA-Public Use
  Company Number: JP-GLAXOSMITHKLINE-B0376701A

PATIENT
  Age: 64 Year
  Sex: Male

DRUGS (9)
  1. HYCAMTIN [Suspect]
     Indication: SMALL CELL LUNG CANCER STAGE UNSPECIFIED
     Dosage: 1MGM2 PER DAY
     Route: 042
     Dates: start: 20031208, end: 20031212
  2. CARBOPLATIN [Concomitant]
     Indication: NEOPLASM MALIGNANT
     Dosage: 450MG PER DAY
     Route: 042
     Dates: start: 20031212, end: 20031212
  3. LEVOFLOXACIN [Concomitant]
     Indication: SYSTEMIC ANTIBACTERIAL THERAPY
     Dosage: 300MG PER DAY
     Route: 048
     Dates: start: 20031208, end: 20031212
  4. LACTIC-ACID-PRODUCING ORGANISMS [Concomitant]
     Indication: ILL-DEFINED DISORDER
     Dosage: 18MG PER DAY
     Route: 048
     Dates: start: 20031208, end: 20031212
  5. AMBROXOL HYDROCHLORIDE [Concomitant]
     Indication: SYSTEMIC ANTIBACTERIAL THERAPY
     Dosage: 45MG PER DAY
     Route: 048
     Dates: start: 20031208, end: 20031212
  6. DEXTROMETHORPHAN HYDROBROMIDE [Concomitant]
     Indication: ANTITUSSIVE THERAPY
     Dosage: 150MG PER DAY
     Route: 048
     Dates: start: 20031208, end: 20031208
  7. METOCLOPRAMIDE [Concomitant]
     Indication: VOMITING
     Dosage: 4ML PER DAY
     Route: 042
     Dates: start: 20031208, end: 20031211
  8. GRANISETRON  HCL [Concomitant]
     Indication: VOMITING
     Dosage: 3ML PER DAY
     Route: 042
     Dates: start: 20031212, end: 20031212
  9. DEXAMETHASONE SODIUM PHOSPHATE [Concomitant]
     Indication: ADRENOCORTICAL STEROID THERAPY
     Dosage: 5ML PER DAY
     Route: 042
     Dates: start: 20031212, end: 20031212

REACTIONS (9)
  - ANAEMIA [None]
  - ANOREXIA [None]
  - BLOOD UREA INCREASED [None]
  - DIZZINESS [None]
  - MALAISE [None]
  - PHARYNGOLARYNGEAL PAIN [None]
  - PLATELET COUNT DECREASED [None]
  - RHINORRHOEA [None]
  - WHITE BLOOD CELL COUNT DECREASED [None]
